FAERS Safety Report 16006905 (Version 1)
Quarter: 2019Q1

REPORT INFORMATION
  Report Type: Spontaneous
  Country: FR (occurrence: FR)
  Receive Date: 20190226
  Receipt Date: 20190226
  Transmission Date: 20190418
  Serious: Yes (Hospitalization)
  Sender: FDA-Public Use
  Company Number: FR-MYLANLABS-2019M1016194

PATIENT
  Age: 69 Year
  Sex: Male
  Weight: 71.8 kg

DRUGS (12)
  1. TEMERIT [Concomitant]
     Active Substance: NEBIVOLOL
     Dosage: UNK
  2. LEVEMIR [Concomitant]
     Active Substance: INSULIN DETEMIR
     Dosage: UNK
  3. IRINOTECAN MEDAC [Suspect]
     Active Substance: IRINOTECAN
     Indication: METASTASES TO PERITONEUM
     Dosage: 279 MILLIGRAM, TOTAL
     Route: 041
     Dates: start: 20180726, end: 20180726
  4. OXALIPLATINE ACCORD [Suspect]
     Active Substance: OXALIPLATIN
     Indication: METASTASES TO PERITONEUM
     Dosage: 158 MILLIGRAM, TOTAL
     Route: 041
     Dates: start: 20180726, end: 20180726
  5. NOVORAPID [Concomitant]
     Active Substance: INSULIN ASPART
     Dosage: UNK
  6. PLAVIX [Concomitant]
     Active Substance: CLOPIDOGREL BISULFATE
     Dosage: UNK
  7. RESITUNE [Concomitant]
     Active Substance: ASPIRIN
     Dosage: UNK
  8. EMEND [Concomitant]
     Active Substance: APREPITANT
     Dosage: UNK
  9. FUROSEMIDE. [Suspect]
     Active Substance: FUROSEMIDE
     Indication: PRODUCT USED FOR UNKNOWN INDICATION
     Dosage: 20 MILLIGRAM, QD
     Route: 048
     Dates: end: 20180802
  10. ESOMEPRAZOLE. [Concomitant]
     Active Substance: ESOMEPRAZOLE MAGNESIUM
     Dosage: UNK
  11. FLUOROURACILE ACCORD [Suspect]
     Active Substance: FLUOROURACIL
     Indication: METASTASES TO PERITONEUM
     Dosage: 372+4464 MG
     Route: 041
     Dates: start: 20180726, end: 20180726
  12. METFORMINE                         /00082701/ [Concomitant]
     Active Substance: METFORMIN HYDROCHLORIDE
     Dosage: UNK

REACTIONS (6)
  - Dehydration [Recovered/Resolved]
  - Weight decreased [Not Recovered/Not Resolved]
  - Diarrhoea [Recovering/Resolving]
  - Acute kidney injury [Recovered/Resolved]
  - Mucosal inflammation [Not Recovered/Not Resolved]
  - Vomiting [Recovered/Resolved]

NARRATIVE: CASE EVENT DATE: 20180728
